FAERS Safety Report 6432981-9 (Version None)
Quarter: 2009Q4

REPORT INFORMATION
  Report Type: 
  Country: None (occurrence: None)
  Receive Date: 20091105
  Receipt Date: 20091029
  Transmission Date: 20100525
  Serious: Yes (Other)
  Sender: FDA-Public Use
  Company Number: 2009SP028267

PATIENT
  Sex: Male

DRUGS (2)
  1. PEGATRON         (PEGINTERFERON ALFA-2B W/ RIBAVIRIN) [Suspect]
     Indication: HEPATITIS C
  2. CLONAZEPAM [Suspect]
     Indication: SCHIZOPHRENIA, PARANOID TYPE

REACTIONS (4)
  - CONDITION AGGRAVATED [None]
  - PLATELET COUNT DECREASED [None]
  - PSYCHOTIC DISORDER [None]
  - SCHIZOPHRENIA [None]
